FAERS Safety Report 25417625 (Version 1)
Quarter: 2025Q2

REPORT INFORMATION
  Report Type: Report from Study
  Country: CA (occurrence: CA)
  Receive Date: 20250610
  Receipt Date: 20250610
  Transmission Date: 20250716
  Serious: Yes (Other)
  Sender: SANDOZ
  Company Number: CA-SANDOZ-SDZ2025CA039824

PATIENT
  Sex: Male

DRUGS (1)
  1. WYOST [Suspect]
     Active Substance: DENOSUMAB-BBDZ
     Indication: Prostate cancer
     Route: 058
     Dates: start: 20250529

REACTIONS (1)
  - Cerebrovascular accident [Unknown]
